FAERS Safety Report 13836194 (Version 2)
Quarter: 2017Q3

REPORT INFORMATION
  Report Type: Spontaneous
  Country: BR (occurrence: BR)
  Receive Date: 20170804
  Receipt Date: 20170804
  Transmission Date: 20171127
  Serious: Yes (Death, Hospitalization, Other)
  Sender: FDA-Public Use
  Company Number: BR-ALEXION-A201706320

PATIENT
  Age: 54 Year
  Sex: Female

DRUGS (3)
  1. PEN V                              /00001801/ [Concomitant]
     Active Substance: PENICILLIN V
     Indication: ANTIBIOTIC PROPHYLAXIS
     Dosage: UNK
     Route: 048
     Dates: start: 20120928
  2. SOLIRIS [Suspect]
     Active Substance: ECULIZUMAB
     Indication: PAROXYSMAL NOCTURNAL HAEMOGLOBINURIA
     Dosage: 600 MG, UNK
     Route: 042
     Dates: start: 20120928, end: 20121019
  3. SOLIRIS [Suspect]
     Active Substance: ECULIZUMAB
     Dosage: 900 MG, UNK
     Route: 042
     Dates: start: 20121026

REACTIONS (12)
  - Haemorrhage [Fatal]
  - Hypovolaemic shock [Fatal]
  - Gastroenteritis [Unknown]
  - Haemolysis [Fatal]
  - Acute kidney injury [Unknown]
  - Malaise [Unknown]
  - Respiratory failure [Unknown]
  - Acidosis [Unknown]
  - Fatigue [Unknown]
  - Urine output decreased [Unknown]
  - Chest pain [Unknown]
  - Anaemia [Unknown]

NARRATIVE: CASE EVENT DATE: 20170603
